FAERS Safety Report 5423993-2 (Version None)
Quarter: 2007Q3

REPORT INFORMATION
  Report Type: 
  Country: None (occurrence: None)
  Receive Date: 20070823
  Receipt Date: 20070814
  Transmission Date: 20080115
  Serious: Yes (Hospitalization)
  Sender: FDA-Public Use
  Company Number: HQWYE770525JUN07

PATIENT
  Sex: Female

DRUGS (5)
  1. EFFEXOR XR [Suspect]
     Indication: DEPRESSION
     Dosage: UNKNOWN
     Route: 048
     Dates: start: 20060701, end: 20061101
  2. EFFEXOR XR [Suspect]
     Route: 048
     Dates: start: 20070518, end: 20070612
  3. EFFEXOR XR [Suspect]
     Route: 048
     Dates: start: 20070613, end: 20070629
  4. EFFEXOR XR [Suspect]
     Dates: start: 20070630
  5. AMBIEN [Concomitant]
     Dosage: 12.5 MG FROM 2 TO 3 TIMES DAILY

REACTIONS (9)
  - ANXIETY [None]
  - CONFUSIONAL STATE [None]
  - DRUG WITHDRAWAL SYNDROME [None]
  - DYSPNOEA [None]
  - HYPERHIDROSIS [None]
  - NERVOUSNESS [None]
  - PANIC ATTACK [None]
  - PARTNER STRESS [None]
  - SELF-MEDICATION [None]
